FAERS Safety Report 13839525 (Version 1)
Quarter: 2017Q3

REPORT INFORMATION
  Report Type: Spontaneous
  Country: KR (occurrence: KP)
  Receive Date: 20170807
  Receipt Date: 20170807
  Transmission Date: 20171127
  Serious: Yes (Disabling, Other)
  Sender: FDA-Public Use
  Company Number: KR-GLENMARK PHARMACEUTICALS-2017GMK028403

PATIENT
  Age: 49 Year
  Sex: Male

DRUGS (2)
  1. TRIAMCINOLONE ACETONIDE. [Suspect]
     Active Substance: TRIAMCINOLONE ACETONIDE
     Indication: CERVICAL RADICULOPATHY
     Dosage: 20 MG, (LEFT-SIDED CERVICAL TRANSFORAMINAL EPIDURAL STEROID INJECTION AT THE C6-C7 LEVEL)
     Route: 008
  2. LEVOBUPIVACAINE [Concomitant]
     Active Substance: LEVOBUPIVACAINE
     Indication: CERVICAL RADICULOPATHY
     Dosage: 2 ML, (LEFT-SIDED CERVICAL TRANSFORAMINAL EPIDURAL STEROID INJECTION AT THE C6-C7 LEVEL)
     Route: 008

REACTIONS (1)
  - Spinal cord infarction [Recovering/Resolving]
